FAERS Safety Report 5329206-4 (Version None)
Quarter: 2007Q2

REPORT INFORMATION
  Report Type: 
  Country: None (occurrence: None)
  Receive Date: 20070518
  Receipt Date: 20070510
  Transmission Date: 20071010
  Serious: Yes (Hospitalization, Other)
  Sender: FDA-Public Use
  Company Number: US-ABBOTT-07P-163-0367983-00

PATIENT
  Sex: Male
  Weight: 97.7 kg

DRUGS (5)
  1. HUMIRA [Suspect]
     Indication: RHEUMATOID ARTHRITIS
     Route: 058
     Dates: start: 20020101
  2. HUMIRA [Suspect]
     Route: 058
     Dates: end: 20061001
  3. HUMIRA [Suspect]
     Route: 058
     Dates: start: 20070401
  4. PREDNISONE TAB [Concomitant]
     Indication: RHEUMATOID ARTHRITIS
     Route: 048
  5. FENTANYL [Concomitant]
     Indication: PAIN
     Dosage: 50 MCG/HR
     Route: 062

REACTIONS (10)
  - AMYLOIDOSIS [None]
  - BASAL CELL CARCINOMA [None]
  - CARDIAC FAILURE CONGESTIVE [None]
  - DRUG INEFFECTIVE [None]
  - EXCORIATION [None]
  - NEOPLASM [None]
  - PNEUMONIA [None]
  - RASH [None]
  - RHEUMATOID ARTHRITIS [None]
  - SWELLING [None]
